FAERS Safety Report 14385076 (Version 1)
Quarter: 2018Q1

REPORT INFORMATION
  Report Type: Spontaneous
  Country: US (occurrence: US)
  Receive Date: 20180115
  Receipt Date: 20180115
  Transmission Date: 20180509
  Serious: No
  Sender: FDA-Public Use
  Company Number: US-LUPIN PHARMACEUTICALS INC.-2017-04175

PATIENT
  Age: 70 Year
  Sex: Female
  Weight: 63.49 kg

DRUGS (1)
  1. METHERGINE [Suspect]
     Active Substance: METHYLERGONOVINE MALEATE
     Indication: MIGRAINE PROPHYLAXIS
     Dosage: 0.2 MG, 5 TIMES A DAY
     Route: 048
     Dates: start: 20160105

REACTIONS (3)
  - Product use in unapproved indication [Unknown]
  - Migraine [Recovered/Resolved]
  - Drug ineffective for unapproved indication [Unknown]

NARRATIVE: CASE EVENT DATE: 20170718
